FAERS Safety Report 12713042 (Version 13)
Quarter: 2017Q2

REPORT INFORMATION
  Report Type: Report from Study
  Country: CA (occurrence: CA)
  Receive Date: 20160902
  Receipt Date: 20170605
  Transmission Date: 20170830
  Serious: Yes (Hospitalization, Other)
  Sender: FDA-Public Use
  Company Number: CA-TAKEDA-2016TUS015016

PATIENT
  Age: 65 Year
  Sex: Female

DRUGS (8)
  1. VEDOLIZUMAB [Suspect]
     Active Substance: VEDOLIZUMAB
     Indication: CROHN^S DISEASE
     Dosage: 300 MG, UNK
     Route: 042
     Dates: start: 20160405
  2. ENTOCORT [Concomitant]
     Active Substance: BUDESONIDE
     Dosage: 6 MG, QD
  3. SPIRIVA [Concomitant]
     Active Substance: TIOTROPIUM BROMIDE MONOHYDRATE
     Dosage: UNK
  4. VENTOLIN [Concomitant]
     Active Substance: ALBUTEROL SULFATE
     Dosage: UNK
  5. PREDNISONE. [Suspect]
     Active Substance: PREDNISONE
     Indication: PRODUCT USED FOR UNKNOWN INDICATION
     Dosage: 40 MG, UNK
     Route: 065
     Dates: start: 201608
  6. PREVACID [Concomitant]
     Active Substance: LANSOPRAZOLE
     Indication: STOMA SITE DISCOMFORT
     Dosage: UNK
  7. MACRODANTIN [Concomitant]
     Active Substance: NITROFURANTOIN
     Indication: CYSTITIS
     Dosage: 100 MG, UNK
  8. ALLOPURINOL. [Concomitant]
     Active Substance: ALLOPURINOL
     Indication: RENAL LITHIASIS PROPHYLAXIS
     Dosage: 300 MG, UNK

REACTIONS (19)
  - Anxiety [Unknown]
  - Oxygen saturation decreased [Unknown]
  - Nausea [Unknown]
  - Blood pressure decreased [Not Recovered/Not Resolved]
  - Weight decreased [Unknown]
  - Dry mouth [Not Recovered/Not Resolved]
  - Oral discomfort [Not Recovered/Not Resolved]
  - Crohn^s disease [Unknown]
  - Post procedural infection [Unknown]
  - Gastrointestinal stoma complication [Unknown]
  - Magnesium deficiency [Not Recovered/Not Resolved]
  - Nephrolithiasis [Unknown]
  - Hernia [Unknown]
  - Abscess [Not Recovered/Not Resolved]
  - Infusion site pain [Unknown]
  - Poor venous access [Unknown]
  - Procedural nausea [Recovered/Resolved with Sequelae]
  - Intestinal obstruction [Unknown]
  - Decreased appetite [Unknown]

NARRATIVE: CASE EVENT DATE: 2016
